FAERS Safety Report 9197890 (Version 1)
Quarter: 2013Q1

REPORT INFORMATION
  Report Type: Spontaneous
  Country: JP (occurrence: JP)
  Receive Date: 20130328
  Receipt Date: 20130328
  Transmission Date: 20140127
  Serious: Yes (Death, Hospitalization)
  Sender: FDA-Public Use
  Company Number: JP-AMGEN-JPNSP2013014579

PATIENT
  Sex: Male

DRUGS (4)
  1. MIMPARA [Suspect]
     Indication: HYPERPARATHYROIDISM SECONDARY
     Dosage: 25 MG, UNK
     Route: 048
     Dates: start: 201109
  2. URSO                               /00465701/ [Concomitant]
     Dosage: UNK
     Route: 048
  3. RIKKUNSHITO [Concomitant]
     Dosage: UNK
     Route: 048
     Dates: start: 201109
  4. URSO [Concomitant]
     Dosage: UNK
     Route: 048

REACTIONS (3)
  - Renal haemorrhage [Fatal]
  - Acute abdomen [Not Recovered/Not Resolved]
  - Alopecia [Not Recovered/Not Resolved]
